FAERS Safety Report 8943435 (Version 2)
Quarter: 2012Q4

REPORT INFORMATION
  Report Type: 
  Country: GB (occurrence: GB)
  Receive Date: 20121203
  Receipt Date: 20121214
  Transmission Date: 20130627
  Serious: Yes (Other)
  Sender: FDA-Public Use
  Company Number: GB-PFIZER INC-2012301498

PATIENT
  Age: 53 Year
  Sex: Male
  Weight: 83 kg

DRUGS (1)
  1. ATORVASTATIN [Suspect]
     Dosage: UNK

REACTIONS (5)
  - Gout [Recovered/Resolved]
  - Malaise [Unknown]
  - Loss of libido [Unknown]
  - Nausea [Unknown]
  - Abdominal discomfort [Unknown]
